FAERS Safety Report 17974835 (Version 2)
Quarter: 2020Q3

REPORT INFORMATION
  Report Type: Report from Study
  Country: US (occurrence: US)
  Receive Date: 20200702
  Receipt Date: 20200827
  Transmission Date: 20201103
  Serious: Yes (Other)
  Sender: FDA-Public Use
  Company Number: US-SHIRE-US202019762

PATIENT
  Sex: Female

DRUGS (1)
  1. HUMAN NORMAL IMMUNOGLOBULIN; LIQUID 20 [Suspect]
     Active Substance: HUMAN IMMUNOGLOBULIN G
     Indication: PRIMARY IMMUNODEFICIENCY SYNDROME
     Dosage: 30 GRAM, 1X/2WKS
     Route: 065

REACTIONS (10)
  - Keratorhexis [Unknown]
  - Spinal osteoarthritis [Unknown]
  - Rash [Unknown]
  - Autoimmune disorder [Unknown]
  - Sjogren^s syndrome [Unknown]
  - Mouth ulceration [Unknown]
  - Hypertension [Unknown]
  - Blood pressure abnormal [Unknown]
  - Candida infection [Unknown]
  - Adrenal neoplasm [Unknown]
